FAERS Safety Report 16154078 (Version 1)
Quarter: 2019Q2

REPORT INFORMATION
  Report Type: Spontaneous
  Country: IT (occurrence: IT)
  Receive Date: 20190403
  Receipt Date: 20190403
  Transmission Date: 20190711
  Serious: Yes (Other)
  Sender: FDA-Public Use
  Company Number: IT-HIKMA PHARMACEUTICALS USA INC.-IT-H14001-19-02066

PATIENT
  Age: 79 Year
  Sex: Female

DRUGS (1)
  1. PAMIDRONIC ACID [Suspect]
     Active Substance: PAMIDRONIC ACID
     Indication: PLASMA CELL MYELOMA
     Route: 065
     Dates: start: 20140101, end: 20160624

REACTIONS (2)
  - Purulent discharge [Not Recovered/Not Resolved]
  - Osteonecrosis of jaw [Not Recovered/Not Resolved]

NARRATIVE: CASE EVENT DATE: 20160624
